FAERS Safety Report 15498552 (Version 1)
Quarter: 2018Q4

REPORT INFORMATION
  Report Type: Spontaneous
  Country: US (occurrence: US)
  Receive Date: 20181015
  Receipt Date: 20181015
  Transmission Date: 20190205
  Serious: Yes (Hospitalization)
  Sender: FDA-Public Use
  Company Number: None

PATIENT
  Sex: Female

DRUGS (6)
  1. CAPECITABINE. [Suspect]
     Active Substance: CAPECITABINE
     Indication: COLON CANCER
     Dosage: ?          OTHER FREQUENCY:100MG BID X 1 WEEK;?
     Route: 048
     Dates: start: 20171115
  2. HYDROCHLOROT, LATANOPROST [Concomitant]
  3. VALSARTAN. [Concomitant]
     Active Substance: VALSARTAN
  4. POT CHLORIDE, COMBIGAN [Concomitant]
  5. METOPROLOL, TYLENOL [Concomitant]
  6. LISINOPRIL. [Concomitant]
     Active Substance: LISINOPRIL

REACTIONS (3)
  - Therapy cessation [None]
  - Dysphonia [None]
  - Ocular hyperaemia [None]
